FAERS Safety Report 7944442-6 (Version None)
Quarter: 2011Q4

REPORT INFORMATION
  Report Type: 
  Country: None (occurrence: None)
  Receive Date: 20111129
  Receipt Date: 20111116
  Transmission Date: 20120403
  Serious: Yes (Other)
  Sender: FDA-Public Use
  Company Number: GB-SHIRE-ALL1-2011-04524

PATIENT
  Sex: Female

DRUGS (1)
  1. REPLAGAL [Suspect]
     Indication: FABRY'S DISEASE
     Dosage: UNK, UNKNOWN
     Route: 041

REACTIONS (5)
  - SYNCOPE [None]
  - INFLUENZA LIKE ILLNESS [None]
  - PYREXIA [None]
  - COUGH [None]
  - INFUSION RELATED REACTION [None]
